FAERS Safety Report 7187137-1 (Version None)
Quarter: 2010Q4

REPORT INFORMATION
  Report Type: 
  Country: None (occurrence: None)
  Receive Date: 20101222
  Receipt Date: 20101216
  Transmission Date: 20110411
  Serious: Yes (Hospitalization)
  Sender: FDA-Public Use
  Company Number: NL-MEDIMMUNE-MEDI-0012007

PATIENT
  Sex: Male
  Weight: 4.285 kg

DRUGS (2)
  1. SYNAGIS [Suspect]
     Route: 030
     Dates: start: 20101115, end: 20101115
  2. SYNAGIS [Suspect]
     Route: 030
     Dates: start: 20101216, end: 20101216

REACTIONS (5)
  - BODY TEMPERATURE INCREASED [None]
  - ENTEROCOCCAL SEPSIS [None]
  - HYPOTONIA [None]
  - PALLOR [None]
  - URINARY TRACT INFECTION [None]
